FAERS Safety Report 9775387 (Version 1)
Quarter: 2013Q4

REPORT INFORMATION
  Report Type: Report from Study
  Country: CA (occurrence: CA)
  Receive Date: 20131220
  Receipt Date: 20131220
  Transmission Date: 20140711
  Serious: Yes (Life-Threatening)
  Sender: FDA-Public Use
  Company Number: CA-JNJFOC-20131210581

PATIENT
  Sex: Male

DRUGS (2)
  1. STELARA [Suspect]
     Indication: PSORIATIC ARTHROPATHY
     Dosage: 0.5ML SYRINGE
     Route: 058
     Dates: end: 201309
  2. ENBREL [Concomitant]
     Route: 065

REACTIONS (3)
  - Immune system disorder [Recovering/Resolving]
  - Influenza [Recovering/Resolving]
  - Pain [Recovering/Resolving]
